FAERS Safety Report 8597953-7 (Version None)
Quarter: 2012Q3

REPORT INFORMATION
  Report Type: 
  Country: None (occurrence: None)
  Receive Date: 20120816
  Receipt Date: 20120813
  Transmission Date: 20120928
  Serious: No
  Sender: FDA-Public Use
  Company Number: US-PFIZER INC-2012198513

PATIENT

DRUGS (2)
  1. VIAGRA [Suspect]
     Dosage: UNK
     Dates: start: 20040322
  2. ACCUPRIL [Suspect]
     Dosage: UNK
     Dates: start: 20040322

REACTIONS (1)
  - HEADACHE [None]
